FAERS Safety Report 25051669 (Version 2)
Quarter: 2025Q2

REPORT INFORMATION
  Report Type: Spontaneous
  Country: CA (occurrence: CA)
  Receive Date: 20250307
  Receipt Date: 20250408
  Transmission Date: 20250716
  Serious: No
  Sender: MYLAN
  Company Number: CA-MYLANLABS-2025M1017689

PATIENT
  Age: 64 Year
  Sex: Male

DRUGS (4)
  1. EPIPEN [Suspect]
     Active Substance: EPINEPHRINE
     Indication: Hypersensitivity
     Dates: start: 20250224, end: 20250224
  2. EPIPEN [Suspect]
     Active Substance: EPINEPHRINE
     Route: 030
     Dates: start: 20250224, end: 20250224
  3. EPIPEN [Suspect]
     Active Substance: EPINEPHRINE
     Route: 030
     Dates: start: 20250224, end: 20250224
  4. EPIPEN [Suspect]
     Active Substance: EPINEPHRINE
     Dates: start: 20250224, end: 20250224

REACTIONS (5)
  - Injection site pain [Unknown]
  - Injection site haemorrhage [Unknown]
  - Needle issue [Unknown]
  - Medical device entrapment [Unknown]
  - Device failure [Unknown]

NARRATIVE: CASE EVENT DATE: 20250224
